FAERS Safety Report 6435331-7 (Version None)
Quarter: 2009Q4

REPORT INFORMATION
  Report Type: 
  Country: None (occurrence: None)
  Receive Date: 20091106
  Receipt Date: 20091022
  Transmission Date: 20100525
  Serious: Yes (Life-Threatening, Hospitalization)
  Sender: FDA-Public Use
  Company Number: TCI2009A04271

PATIENT

DRUGS (2)
  1. ACTOS [Suspect]
     Indication: DIABETES MELLITUS
     Dosage: PER ORAL
     Route: 048
     Dates: end: 20091019
  2. METFORMIN HYDROCHLORIDE [Suspect]
     Dosage: PER ORAL
     Route: 048

REACTIONS (2)
  - APNOEA [None]
  - CEREBRAL HAEMORRHAGE [None]
